FAERS Safety Report 17433935 (Version 1)
Quarter: 2020Q1

REPORT INFORMATION
  Report Type: Spontaneous
  Country: US (occurrence: US)
  Receive Date: 20200219
  Receipt Date: 20200219
  Transmission Date: 20200409
  Serious: No
  Sender: FDA-Public Use
  Company Number: US-ALKEM LABORATORIES LIMITED-US-ALKEM-2019-11077

PATIENT
  Sex: Female

DRUGS (2)
  1. SILVER SULFADIAZINE. [Suspect]
     Active Substance: SILVER SULFADIAZINE
     Indication: BURNS SECOND DEGREE
     Dosage: APPLY ONCE OR TWICE AS REQUIRED
     Route: 061
  2. SILVER SULFADIAZINE. [Suspect]
     Active Substance: SILVER SULFADIAZINE
     Indication: BURNS THIRD DEGREE

REACTIONS (1)
  - Product use in unapproved indication [Unknown]
